FAERS Safety Report 8726355 (Version 2)
Quarter: 2013Q1

REPORT INFORMATION
  Report Type: Spontaneous
  Country: AU (occurrence: AU)
  Receive Date: 20120816
  Receipt Date: 20130320
  Transmission Date: 20140127
  Serious: Yes (Death)
  Sender: FDA-Public Use
  Company Number: PHHY2012AU070320

PATIENT
  Sex: Male

DRUGS (2)
  1. ACLASTA [Suspect]
     Dosage: 5 MG/YEAR
     Route: 042
     Dates: start: 20100806
  2. ACLASTA [Suspect]
     Dosage: 5 MG/YEAR
     Route: 042
     Dates: start: 20110927

REACTIONS (1)
  - Death [Fatal]
